FAERS Safety Report 10483105 (Version 2)
Quarter: 2014Q4

REPORT INFORMATION
  Report Type: Spontaneous
  Country: US (occurrence: US)
  Receive Date: 20140930
  Receipt Date: 20141114
  Transmission Date: 20150528
  Serious: Yes (Other)
  Sender: FDA-Public Use
  Company Number: US-ROCHE-1466737

PATIENT
  Sex: Male
  Weight: 82.1 kg

DRUGS (5)
  1. AVASTIN [Suspect]
     Active Substance: BEVACIZUMAB
     Route: 050
     Dates: start: 20140325
  2. AVASTIN [Suspect]
     Active Substance: BEVACIZUMAB
     Indication: AGE-RELATED MACULAR DEGENERATION
     Route: 031
  3. EYLEA [Suspect]
     Active Substance: AFLIBERCEPT
     Indication: AGE-RELATED MACULAR DEGENERATION
     Route: 050
     Dates: start: 20140912, end: 20140912
  4. EYLEA [Suspect]
     Active Substance: AFLIBERCEPT
     Route: 050
     Dates: start: 20140708, end: 20140708
  5. EYLEA [Suspect]
     Active Substance: AFLIBERCEPT
     Route: 050
     Dates: start: 20141028, end: 20141028

REACTIONS (3)
  - Retinal oedema [Unknown]
  - Vision blurred [Unknown]
  - Therapeutic response decreased [Unknown]
